FAERS Safety Report 6145666-3 (Version None)
Quarter: 2009Q2

REPORT INFORMATION
  Report Type: 
  Country: None (occurrence: None)
  Receive Date: 20090407
  Receipt Date: 20090326
  Transmission Date: 20091009
  Serious: Yes (Hospitalization)
  Sender: FDA-Public Use
  Company Number: DE-JNJFOC-20090300814

PATIENT
  Age: 61 Year
  Sex: Female
  Weight: 104 kg

DRUGS (6)
  1. REMICADE [Suspect]
     Route: 042
  2. REMICADE [Suspect]
     Route: 042
  3. REMICADE [Suspect]
     Indication: PSORIASIS
     Route: 042
  4. IBUPROFEN [Concomitant]
     Indication: SCIATICA
     Route: 048
  5. TRIAMTEREN [Concomitant]
     Indication: HYPERTENSION
     Route: 048
  6. SERTALIN [Concomitant]
     Indication: DEPRESSION
     Route: 048

REACTIONS (1)
  - BASAL CELL CARCINOMA [None]
